FAERS Safety Report 9369703 (Version 1)
Quarter: 2013Q2

REPORT INFORMATION
  Report Type: Spontaneous
  Country: US (occurrence: US)
  Receive Date: 20130626
  Receipt Date: 20130626
  Transmission Date: 20140414
  Serious: No
  Sender: FDA-Public Use
  Company Number: US-MYLANLABS-2012S1015063

PATIENT
  Age: 85 Year
  Sex: Male
  Weight: 78.02 kg

DRUGS (1)
  1. OMEPRAZOLE DELAYED-RELEASE CAPSULES, USP [Suspect]
     Route: 048

REACTIONS (1)
  - Weight decreased [Not Recovered/Not Resolved]
